FAERS Safety Report 18875295 (Version 1)
Quarter: 2021Q1

REPORT INFORMATION
  Report Type: Spontaneous
  Country: ES (occurrence: ES)
  Receive Date: 20210210
  Receipt Date: 20210210
  Transmission Date: 20210420
  Serious: Yes (Hospitalization)
  Sender: FDA-Public Use
  Company Number: ES-EISAI MEDICAL RESEARCH-EC-2021-087334

PATIENT
  Age: 80 Year
  Sex: Female
  Weight: 67 kg

DRUGS (3)
  1. AMLODIPINO [Suspect]
     Active Substance: AMLODIPINE BESYLATE
     Indication: HYPERTENSION
     Route: 048
     Dates: start: 20130306, end: 20210121
  2. FYCOMPA [Suspect]
     Active Substance: PERAMPANEL
     Indication: ESSENTIAL TREMOR
     Route: 048
     Dates: start: 20201009, end: 20210128
  3. ACEDIUR [CAPTOPRIL/HYDROCHLOROTHIAZIDE] [Suspect]
     Active Substance: CAPTOPRIL\HYDROCHLOROTHIAZIDE
     Indication: HYPERTENSION
     Route: 048
     Dates: start: 20180427, end: 20200121

REACTIONS (3)
  - Periorbital oedema [Recovered/Resolved]
  - Angioedema [Recovering/Resolving]
  - Palatal oedema [Recovering/Resolving]

NARRATIVE: CASE EVENT DATE: 20201120
